FAERS Safety Report 15880105 (Version 1)
Quarter: 2019Q1

REPORT INFORMATION
  Report Type: Spontaneous
  Country: US (occurrence: US)
  Receive Date: 20190128
  Receipt Date: 20190128
  Transmission Date: 20190417
  Serious: No
  Sender: FDA-Public Use
  Company Number: US-GLAXOSMITHKLINE-US2017066875

PATIENT
  Sex: Female

DRUGS (3)
  1. ZANTAC [Suspect]
     Active Substance: RANITIDINE HYDROCHLORIDE
     Indication: GASTRITIS
     Dosage: UNK
  2. TUMS ULTRA [Suspect]
     Active Substance: CALCIUM CARBONATE
     Indication: DYSPEPSIA
     Dosage: UNK,TOOK 6 OR 7 A DAY FOR A COUPLE WEEKS
     Dates: start: 20170407, end: 20170420
  3. CALCIUM SUPPLEMENT [Suspect]
     Active Substance: CALCIUM
     Indication: PRODUCT USED FOR UNKNOWN INDICATION
     Dosage: UNK

REACTIONS (8)
  - Vomiting [Unknown]
  - Amnesia [Recovering/Resolving]
  - Abdominal pain upper [Unknown]
  - Condition aggravated [Unknown]
  - Blood calcium increased [Recovering/Resolving]
  - Arthralgia [Unknown]
  - Back pain [Unknown]
  - Nausea [Unknown]
